FAERS Safety Report 12466395 (Version 3)
Quarter: 2019Q4

REPORT INFORMATION
  Report Type: Report from Study
  Country: US (occurrence: US)
  Receive Date: 20160615
  Receipt Date: 20191010
  Transmission Date: 20200122
  Serious: Yes (Hospitalization, Other)
  Sender: FDA-Public Use
  Company Number: US-AMGEN-USASL2016073911

PATIENT
  Age: 79 Year
  Sex: Female

DRUGS (1)
  1. REPATHA [Suspect]
     Active Substance: EVOLOCUMAB
     Indication: HYPERCHOLESTEROLAEMIA
     Dosage: 140 MG, Q2WK
     Route: 058
     Dates: start: 201510

REACTIONS (15)
  - Intestinal obstruction [Not Recovered/Not Resolved]
  - Abdominal operation [Unknown]
  - Asthenia [Unknown]
  - Sinusitis [Unknown]
  - Cellulitis [Unknown]
  - Fibromyalgia [Unknown]
  - Lethargy [Not Recovered/Not Resolved]
  - Back pain [Unknown]
  - General physical health deterioration [Unknown]
  - Memory impairment [Unknown]
  - Rhinorrhoea [Unknown]
  - Lacrimation increased [Unknown]
  - Pain [Not Recovered/Not Resolved]
  - Hypertension [Unknown]
  - Hypersensitivity [Unknown]
